FAERS Safety Report 5851857-9 (Version None)
Quarter: 2008Q3

REPORT INFORMATION
  Report Type: 
  Country: None (occurrence: None)
  Receive Date: 20080819
  Receipt Date: 20080804
  Transmission Date: 20090109
  Serious: Yes (Life-Threatening, Hospitalization, Disabling)
  Sender: FDA-Public Use
  Company Number: 2008S1013956

PATIENT
  Age: 30 Year
  Sex: Male

DRUGS (2)
  1. CITALOPRAM (CITALOPRAM) [Suspect]
     Indication: DEPRESSION
     Dates: start: 20080527
  2. RISPERIDONE [Concomitant]

REACTIONS (4)
  - AGITATION [None]
  - ANKLE FRACTURE [None]
  - HALLUCINATION, AUDITORY [None]
  - SLEEP DISORDER [None]
